FAERS Safety Report 9720073 (Version 1)
Quarter: 2013Q4

REPORT INFORMATION
  Report Type: Spontaneous
  Country: US (occurrence: US)
  Receive Date: 20131128
  Receipt Date: 20131128
  Transmission Date: 20140711
  Serious: Yes (Other)
  Sender: FDA-Public Use
  Company Number: US-AMGEN-USASP2013083733

PATIENT
  Age: 6 Month
  Sex: Female

DRUGS (2)
  1. ENBREL [Suspect]
     Indication: PRODUCT USED FOR UNKNOWN INDICATION
     Dosage: 50 MG, AS NECESSARY (EVERY 3 TO 4 WEEKS )
     Route: 063
     Dates: start: 201103
  2. ENBREL [Suspect]
     Indication: PRODUCT USED FOR UNKNOWN INDICATION
     Dosage: 50 MG, AS NECESSARY (EVERY 3 TO 4 WEEKS )
     Route: 063
     Dates: start: 201103

REACTIONS (2)
  - Feeding disorder neonatal [Unknown]
  - Exposure during breast feeding [Unknown]
